FAERS Safety Report 6957554-0 (Version None)
Quarter: 2010Q3

REPORT INFORMATION
  Report Type: 
  Country: None (occurrence: None)
  Receive Date: 20100831
  Receipt Date: 20100819
  Transmission Date: 20110219
  Serious: Yes (Other)
  Sender: FDA-Public Use
  Company Number: US-ELI_LILLY_AND_COMPANY-US201008006024

PATIENT
  Sex: Female

DRUGS (3)
  1. HUMULIN 70/30 [Suspect]
     Indication: TYPE 2 DIABETES MELLITUS
     Dosage: UNK, 3/D
  2. HUMULIN 70/30 [Suspect]
     Dosage: 24 U, OTHER
     Dates: start: 20100819
  3. ALLOPURINOL [Concomitant]

REACTIONS (4)
  - BLOOD GLUCOSE INCREASED [None]
  - DRUG INEFFECTIVE [None]
  - GOUT [None]
  - RENAL CANCER [None]
